FAERS Safety Report 8958595 (Version 2)
Quarter: 2013Q1

REPORT INFORMATION
  Report Type: Spontaneous
  Country: US (occurrence: None)
  Receive Date: 20121203
  Receipt Date: 20121206
  Transmission Date: 20140127
  Serious: Yes (Other)
  Sender: FDA-Public Use
  Company Number: JPI-P-026456

PATIENT
  Age: 51 Year
  Sex: Male

DRUGS (3)
  1. XYREM (500 MILLIGRAM/MILLILITERS, SOLUTION) (SODIUM OXYBATE) [Suspect]
     Indication: NARCOLEPSY
     Route: 048
     Dates: start: 201105
  2. UNSPECIFIED SLEEPING AID [Suspect]
     Indication: POOR QUALITY SLEEP
     Dates: start: 201201
  3. SIMVASTATIN [Concomitant]

REACTIONS (6)
  - Memory impairment [None]
  - No therapeutic response [None]
  - Aggression [None]
  - Hypoxia [None]
  - Confusional state [None]
  - Feeling abnormal [None]
